FAERS Safety Report 10744512 (Version 1)
Quarter: 2015Q1

REPORT INFORMATION
  Report Type: Spontaneous
  Country: US (occurrence: None)
  Receive Date: 20150126
  Receipt Date: 20150126
  Transmission Date: 20150721
  Serious: Yes (Other)
  Sender: FDA-Public Use
  Company Number: None

PATIENT
  Age: 25 Year
  Sex: Female
  Weight: 45.36 kg

DRUGS (1)
  1. CIPROFLOXACIN. [Suspect]
     Active Substance: CIPROFLOXACIN
     Indication: URINARY TRACT INFECTION
     Route: 048
     Dates: start: 20150118, end: 20150124

REACTIONS (8)
  - Asthenia [None]
  - Headache [None]
  - Tremor [None]
  - Hypoaesthesia [None]
  - Restlessness [None]
  - Vasodilatation [None]
  - Muscle tightness [None]
  - Insomnia [None]

NARRATIVE: CASE EVENT DATE: 20150125
